FAERS Safety Report 7817732-5 (Version None)
Quarter: 2011Q4

REPORT INFORMATION
  Report Type: 
  Country: None (occurrence: None)
  Receive Date: 20111017
  Receipt Date: 20111007
  Transmission Date: 20120403
  Serious: Yes (Life-Threatening)
  Sender: FDA-Public Use
  Company Number: CZ-JNJFOC-20111003687

PATIENT
  Sex: Male
  Weight: 18 kg

DRUGS (4)
  1. HYDROCORTISONE [Concomitant]
     Indication: PREMEDICATION
     Route: 065
  2. DITHIADEN [Concomitant]
     Indication: PREMEDICATION
     Route: 065
  3. REMICADE [Suspect]
     Indication: PROCTOCOLITIS
     Route: 042
     Dates: start: 20110930, end: 20110930
  4. TPN [Concomitant]
     Indication: PARENTERAL NUTRITION
     Route: 065

REACTIONS (7)
  - CYANOSIS [None]
  - OXYGEN SATURATION DECREASED [None]
  - TACHYCARDIA [None]
  - DYSPNOEA [None]
  - INFUSION RELATED REACTION [None]
  - ABDOMINAL PAIN [None]
  - COUGH [None]
